FAERS Safety Report 23066157 (Version 2)
Quarter: 2023Q4

REPORT INFORMATION
  Report Type: Other
  Country: CN (occurrence: None)
  Receive Date: 20231014
  Receipt Date: 20231120
  Transmission Date: 20240110
  Serious: Yes (Life-Threatening, Hospitalization)
  Sender: FDA-Public Use
  Company Number: CN-ROCHE-3436052

PATIENT
  Age: 68 Year
  Sex: Female

DRUGS (9)
  1. ATEZOLIZUMAB [Suspect]
     Active Substance: ATEZOLIZUMAB
     Indication: Small cell lung cancer
     Dosage: ON DAY 1
     Route: 042
     Dates: start: 20211231
  2. PACLITAXEL [Concomitant]
     Active Substance: PACLITAXEL
     Dosage: ON DAY 1
  3. CARBOPLATIN [Concomitant]
     Active Substance: CARBOPLATIN
     Dosage: ON DAY 1
  4. MEROPENEM [Concomitant]
     Active Substance: MEROPENEM
  5. VANCOMYCIN [Concomitant]
     Active Substance: VANCOMYCIN
  6. CASPOFUNGIN [Concomitant]
     Active Substance: CASPOFUNGIN
  7. CASPOFUNGIN [Concomitant]
     Active Substance: CASPOFUNGIN
  8. GANCICLOVIR [Concomitant]
     Active Substance: GANCICLOVIR
  9. PREDNISONE [Concomitant]
     Active Substance: PREDNISONE
     Route: 048

REACTIONS (1)
  - Encephalitis autoimmune [Recovered/Resolved]
